FAERS Safety Report 21835362 (Version 2)
Quarter: 2023Q1

REPORT INFORMATION
  Report Type: Spontaneous
  Country: US (occurrence: US)
  Receive Date: 20230109
  Receipt Date: 20230113
  Transmission Date: 20230418
  Serious: No
  Sender: FDA-Public Use
  Company Number: US-AMGEN-USASP2023001294

PATIENT
  Age: 48 Year
  Sex: Female

DRUGS (1)
  1. AIMOVIG [Suspect]
     Active Substance: ERENUMAB-AOOE
     Indication: Product used for unknown indication
     Dosage: 140 MILLIGRAM, QMO
     Route: 065

REACTIONS (6)
  - Therapeutic response shortened [Unknown]
  - Drug dose omission by device [Unknown]
  - Device difficult to use [Unknown]
  - Headache [Unknown]
  - Wrong technique in device usage process [Unknown]
  - Injection site pain [Unknown]

NARRATIVE: CASE EVENT DATE: 20230104
